FAERS Safety Report 12854210 (Version 2)
Quarter: 2016Q4

REPORT INFORMATION
  Report Type: Spontaneous
  Country: BE (occurrence: BE)
  Receive Date: 20161017
  Receipt Date: 20161213
  Transmission Date: 20170207
  Serious: Yes (Hospitalization, Other)
  Sender: FDA-Public Use
  Company Number: BE-JNJFOC-20161008860

PATIENT
  Age: 71 Year
  Sex: Male

DRUGS (9)
  1. EMCONCOR [Concomitant]
     Active Substance: BISOPROLOL FUMARATE
     Route: 048
  2. XARELTO [Suspect]
     Active Substance: RIVAROXABAN
     Indication: ATRIAL FIBRILLATION
     Route: 048
     Dates: start: 20150429, end: 20160519
  3. DICLOFENAC [Suspect]
     Active Substance: DICLOFENAC
     Indication: RIB FRACTURE
     Route: 048
     Dates: start: 20160509
  4. DICLOFENAC [Suspect]
     Active Substance: DICLOFENAC
     Indication: FRACTURE PAIN
     Route: 048
     Dates: start: 20160509
  5. XANAX [Concomitant]
     Active Substance: ALPRAZOLAM
     Route: 048
  6. PARACETAMOL [Concomitant]
     Active Substance: ACETAMINOPHEN
     Route: 048
  7. XARELTO [Suspect]
     Active Substance: RIVAROXABAN
     Indication: THROMBOSIS PROPHYLAXIS
     Route: 048
     Dates: start: 20150429, end: 20160519
  8. ZESTORETIC [Concomitant]
     Active Substance: HYDROCHLOROTHIAZIDE\LISINOPRIL
     Route: 065
  9. CRESTOR [Concomitant]
     Active Substance: ROSUVASTATIN CALCIUM
     Route: 048

REACTIONS (19)
  - Acute kidney injury [Recovered/Resolved]
  - Acute kidney injury [Unknown]
  - Vertigo [Unknown]
  - Rib fracture [Unknown]
  - Fall [Unknown]
  - Pain [Unknown]
  - Dyspnoea exertional [Unknown]
  - Faeces hard [Unknown]
  - Hypotension [Recovered/Resolved]
  - Haematochezia [Unknown]
  - Anaemia [Unknown]
  - Hyperhidrosis [Unknown]
  - Abdominal pain upper [Recovered/Resolved]
  - Abnormal faeces [Unknown]
  - Splenic rupture [Unknown]
  - Gastric ulcer haemorrhage [Unknown]
  - Haemorrhage [Recovered/Resolved]
  - Vertigo [Unknown]
  - Dyspnoea exertional [Unknown]

NARRATIVE: CASE EVENT DATE: 20160514
